FAERS Safety Report 6416229-7 (Version None)
Quarter: 2009Q4

REPORT INFORMATION
  Report Type: 
  Country: None (occurrence: None)
  Receive Date: 20091022
  Receipt Date: 20091007
  Transmission Date: 20100525
  Serious: Yes (Other)
  Sender: FDA-Public Use
  Company Number: NL-JNJFOC-20091004730

PATIENT
  Age: 48 Year
  Sex: Female

DRUGS (1)
  1. DACOGEN [Suspect]
     Indication: ACUTE MYELOID LEUKAEMIA
     Dosage: 500 MG/M2, 2 IN 1 DAY, INTRAVENOUS
     Route: 042

REACTIONS (4)
  - HEMIPARESIS [None]
  - OFF LABEL USE [None]
  - PERITONITIS [None]
  - SOMNOLENCE [None]
